FAERS Safety Report 7149087-6 (Version None)
Quarter: 2010Q4

REPORT INFORMATION
  Report Type: 
  Country: None (occurrence: None)
  Receive Date: 20101209
  Receipt Date: 20101125
  Transmission Date: 20110411
  Serious: Yes (Disabling)
  Sender: FDA-Public Use
  Company Number: JP-BRISTOL-MYERS SQUIBB COMPANY-15404759

PATIENT
  Age: 49 Year
  Sex: Female

DRUGS (1)
  1. ORENCIA [Suspect]
     Dosage: ADMISTD 3 TIMES. THERAPY DATES:8OCT10,22OCT10
     Dates: start: 20100924

REACTIONS (1)
  - DIABETES MELLITUS [None]
